FAERS Safety Report 7836959-X (Version None)
Quarter: 2011Q4

REPORT INFORMATION
  Report Type: 
  Country: None (occurrence: None)
  Receive Date: 20111024
  Receipt Date: 20101229
  Transmission Date: 20120403
  Serious: No
  Sender: FDA-Public Use
  Company Number: US-ABBOTT-10P-163-0694439-00

PATIENT
  Sex: Female
  Weight: 43.13 kg

DRUGS (1)
  1. LUPRON DEPOT [Suspect]
     Indication: ENDOMETRIOSIS
     Dates: start: 20100101, end: 20101101

REACTIONS (9)
  - UTERINE PAIN [None]
  - ADNEXA UTERI PAIN [None]
  - BREAST TENDERNESS [None]
  - NIPPLE DISORDER [None]
  - VAGINAL DISCHARGE [None]
  - FATIGUE [None]
  - BREAST SWELLING [None]
  - RASH [None]
  - NIPPLE PAIN [None]
